FAERS Safety Report 26131698 (Version 1)
Quarter: 2025Q4

REPORT INFORMATION
  Report Type: Spontaneous
  Country: US (occurrence: US)
  Receive Date: 20251208
  Receipt Date: 20251208
  Transmission Date: 20260117
  Serious: Yes (Other)
  Sender: BAYER HEALTHCARE PHARMACEUTICALS INC.
  Company Number: US-BAYER-2025A161406

PATIENT
  Age: 63 Year
  Sex: Female

DRUGS (1)
  1. KOVALTRY [Suspect]
     Active Substance: ANTIHEMOPHILIC FACTOR, HUMAN RECOMBINANT
     Dosage: KOVALTRY 2142 IU: INFUSE~2052 UNITS
     Route: 042

REACTIONS (2)
  - Pain in extremity [None]
  - Illness [None]

NARRATIVE: CASE EVENT DATE: 20251203
